FAERS Safety Report 11835781 (Version 1)
Quarter: 2015Q4

REPORT INFORMATION
  Report Type: Spontaneous
  Country: US (occurrence: None)
  Receive Date: 20151214
  Receipt Date: 20151214
  Transmission Date: 20160305
  Serious: Yes (Life-Threatening, Disabling, Other)
  Sender: FDA-Public Use
  Company Number: None

PATIENT
  Age: 38 Year
  Sex: Female
  Weight: 72.58 kg

DRUGS (1)
  1. LEVAQUIN [Suspect]
     Active Substance: LEVOFLOXACIN
     Indication: EAR INFECTION
     Dosage: 1XA DAY 500
     Route: 048

REACTIONS (6)
  - Hyperthyroidism [None]
  - Alopecia [None]
  - Skin disorder [None]
  - Heart rate irregular [None]
  - Bone disorder [None]
  - Liver injury [None]

NARRATIVE: CASE EVENT DATE: 20151111
